FAERS Safety Report 16934611 (Version 3)
Quarter: 2019Q4

REPORT INFORMATION
  Report Type: Report from Study
  Country: DE (occurrence: DE)
  Receive Date: 20191018
  Receipt Date: 20191122
  Transmission Date: 20200122
  Serious: Yes (Hospitalization, Other)
  Sender: FDA-Public Use
  Company Number: DE-EMD SERONO-9035636

PATIENT
  Age: 54 Year
  Sex: Female
  Weight: 67 kg

DRUGS (19)
  1. ZINBRYTA [Suspect]
     Active Substance: DACLIZUMAB
     Indication: RELAPSING-REMITTING MULTIPLE SCLEROSIS
     Dosage: SOLUTION FOR INJECTION IN PRE-FILLED SYRINGE
     Route: 058
     Dates: start: 20170906, end: 20180228
  2. EUTIROX [Concomitant]
     Active Substance: LEVOTHYROXINE SODIUM
     Dosage: TWICE DAILY.
     Route: 048
  3. BACLOFEN. [Concomitant]
     Active Substance: BACLOFEN
     Indication: MUSCLE SPASTICITY
     Route: 048
     Dates: start: 20140312
  4. SERTRALINE [Concomitant]
     Active Substance: SERTRALINE HYDROCHLORIDE
     Indication: DEPRESSION
     Dosage: ONCE DAILY
     Route: 048
     Dates: start: 20180905, end: 2018
  5. MAVENCLAD [Suspect]
     Active Substance: CLADRIBINE
     Indication: RELAPSING MULTIPLE SCLEROSIS
     Dosage: FIRST WEEK THERAPY: TWO TABLETS ON DAY 1 AND ONE TABLET ON DAYS 2 AND 3 (10 MG)
     Route: 048
     Dates: start: 20180601, end: 20180603
  6. MAVENCLAD [Suspect]
     Active Substance: CLADRIBINE
     Indication: SECONDARY PROGRESSIVE MULTIPLE SCLEROSIS
  7. PANTOPRAZOLE [Concomitant]
     Active Substance: PANTOPRAZOLE
     Indication: PROPHYLAXIS
     Route: 048
     Dates: start: 20160113
  8. SIRDALUD [Concomitant]
     Active Substance: TIZANIDINE
     Indication: OEDEMA
     Dosage: THRICE DAILY.
     Route: 048
     Dates: start: 20180803, end: 20180912
  9. IBUPROFEN. [Concomitant]
     Active Substance: IBUPROFEN
     Indication: MUSCLE SPASTICITY
     Dosage: ONCE DAILY
     Route: 048
     Dates: start: 20180803
  10. EUTIROX [Concomitant]
     Active Substance: LEVOTHYROXINE SODIUM
     Indication: THYROID MALFORMATION
     Route: 048
     Dates: start: 201106
  11. ORTOTON                            /00047901/ [Concomitant]
     Active Substance: METHOCARBAMOL
     Indication: PAIN
     Dosage: ONCE DAILY
     Route: 048
     Dates: start: 20180802, end: 2018
  12. MAVENCLAD [Suspect]
     Active Substance: CLADRIBINE
     Indication: MULTIPLE SCLEROSIS
  13. MODAFINIL. [Concomitant]
     Active Substance: MODAFINIL
     Indication: FATIGUE
     Route: 048
     Dates: start: 20140430
  14. FAMPYRA [Suspect]
     Active Substance: DALFAMPRIDINE
     Indication: MUSCLE SPASTICITY
     Route: 048
     Dates: start: 20111214
  15. PANTOPRAZOLE [Concomitant]
     Active Substance: PANTOPRAZOLE
     Indication: GASTROINTESTINAL DISORDER THERAPY
     Route: 048
     Dates: start: 20140312
  16. FAMPYRA [Suspect]
     Active Substance: DALFAMPRIDINE
     Indication: MULTIPLE SCLEROSIS
     Route: 048
     Dates: start: 20120607
  17. PANTOPRAZOLE [Concomitant]
     Active Substance: PANTOPRAZOLE
     Dosage: TWICE DAILY.
     Route: 048
  18. FAMPYRA [Suspect]
     Active Substance: DALFAMPRIDINE
     Route: 048
     Dates: start: 20140624
  19. IBUPROFEN. [Concomitant]
     Active Substance: IBUPROFEN
     Indication: OEDEMA

REACTIONS (9)
  - Alopecia [Recovered/Resolved]
  - Madarosis [Recovered/Resolved]
  - Nausea [Recovered/Resolved]
  - Abdominal pain [Recovered/Resolved]
  - Dermatitis allergic [Unknown]
  - Peripheral swelling [Unknown]
  - Decreased appetite [Recovered/Resolved]
  - Pain [Not Recovered/Not Resolved]
  - Headache [Recovered/Resolved]

NARRATIVE: CASE EVENT DATE: 20180602
